FAERS Safety Report 26162569 (Version 1)
Quarter: 2025Q4

REPORT INFORMATION
  Report Type: Report from Study
  Country: IN (occurrence: IN)
  Receive Date: 20251216
  Receipt Date: 20251216
  Transmission Date: 20260118
  Serious: Yes (Death, Other)
  Sender: ALEXION PHARMACEUTICALS
  Company Number: IN-AstraZeneca-CH-01014808A

PATIENT
  Sex: Female
  Weight: 55 kg

DRUGS (1)
  1. OSIMERTINIB [Suspect]
     Active Substance: OSIMERTINIB
     Indication: Non-small cell lung cancer metastatic
     Dosage: 80 MILLIGRAM, QD
     Route: 061

REACTIONS (8)
  - Lung neoplasm malignant [Fatal]
  - Mouth ulceration [Fatal]
  - Cardiac disorder [Fatal]
  - Dyspnoea [Fatal]
  - Blood sodium decreased [Fatal]
  - Cough [Fatal]
  - Pneumonia [Unknown]
  - Pleural effusion [Unknown]
